FAERS Safety Report 13303922 (Version 1)
Quarter: 2017Q1

REPORT INFORMATION
  Report Type: Not Available
  Country: IT (occurrence: IT)
  Receive Date: 20170307
  Receipt Date: 20170307
  Transmission Date: 20170428
  Serious: Yes (Death)
  Sender: FDA-Public Use
  Company Number: IT--2017-IT-000001

PATIENT
  Age: 50 Year
  Sex: Male

DRUGS (6)
  1. ZOLPIDEM TARTRATE BRAND UNSPECIFIED (VIVIMED) [Suspect]
     Active Substance: ZOLPIDEM TARTRATE
     Indication: COMPLETED SUICIDE
     Route: 048
  2. PROPOFOL. [Suspect]
     Active Substance: PROPOFOL
     Indication: COMPLETED SUICIDE
  3. MIDAZOLAM [Suspect]
     Active Substance: MIDAZOLAM HYDROCHLORIDE
     Indication: COMPLETED SUICIDE
  4. AMITRIPTYLINE [Suspect]
     Active Substance: AMITRIPTYLINE
     Indication: COMPLETED SUICIDE
  5. DIPRIVAN [Suspect]
     Active Substance: PROPOFOL
     Indication: COMPLETED SUICIDE
  6. THIOPENTAL [Suspect]
     Active Substance: THIOPENTAL
     Indication: COMPLETED SUICIDE

REACTIONS (3)
  - Cardiopulmonary failure [Fatal]
  - Drug abuse [Fatal]
  - Completed suicide [Fatal]
